FAERS Safety Report 8467329-1 (Version None)
Quarter: 2012Q2

REPORT INFORMATION
  Report Type: 
  Country: None (occurrence: None)
  Receive Date: 20120626
  Receipt Date: 20120613
  Transmission Date: 20120825
  Serious: Yes (Hospitalization, Other)
  Sender: FDA-Public Use
  Company Number: IT-CELGENEUS-083-22393-12062141

PATIENT

DRUGS (3)
  1. ISTODAX [Suspect]
     Route: 041
  2. ISTODAX [Suspect]
     Route: 041
     Dates: start: 20120327
  3. ISTODAX [Suspect]
     Route: 041
     Dates: start: 20120530, end: 20120530

REACTIONS (5)
  - DECREASED APPETITE [None]
  - PYREXIA [None]
  - THROMBOCYTOPENIA [None]
  - FATIGUE [None]
  - MONOPLEGIA [None]
